FAERS Safety Report 15474328 (Version 3)
Quarter: 2018Q4

REPORT INFORMATION
  Report Type: Spontaneous
  Country: SE (occurrence: SE)
  Receive Date: 20181008
  Receipt Date: 20181018
  Transmission Date: 20190205
  Serious: Yes (Life-Threatening, Hospitalization, Disabling)
  Sender: FDA-Public Use
  Company Number: SE-JNJFOC-20181006691

PATIENT
  Age: 50 Year
  Sex: Female
  Weight: 53 kg

DRUGS (1)
  1. XEPLION [Suspect]
     Active Substance: PALIPERIDONE PALMITATE
     Indication: PRODUCT USED FOR UNKNOWN INDICATION
     Dosage: 200 MG IN ONE WEEK AND THEN 100 MG ONCE PER MONTH
     Route: 030
     Dates: start: 20170704, end: 20180304

REACTIONS (5)
  - Incorrect dose administered [Unknown]
  - Cardiac arrest [Not Recovered/Not Resolved]
  - Atrioventricular block complete [Not Recovered/Not Resolved]
  - Hypokalaemia [Not Recovered/Not Resolved]
  - Off label use [Unknown]

NARRATIVE: CASE EVENT DATE: 20180304
